FAERS Safety Report 19086885 (Version 3)
Quarter: 2021Q2

REPORT INFORMATION
  Report Type: Spontaneous
  Country: CA (occurrence: CA)
  Receive Date: 20210402
  Receipt Date: 20210424
  Transmission Date: 20210717
  Serious: Yes (Hospitalization, Other)
  Sender: FDA-Public Use
  Company Number: CA-UNITED THERAPEUTICS-UNT-2021-004494

PATIENT
  Age: 17 Year
  Sex: Female

DRUGS (4)
  1. REMODULIN [Suspect]
     Active Substance: TREPROSTINIL
     Dosage: UNK, CONTINUING (AT INFUSION RATE OF 0.030 ML/HR)
     Route: 058
  2. REMODULIN [Suspect]
     Active Substance: TREPROSTINIL
     Indication: PULMONARY ARTERIAL HYPERTENSION
     Dosage: UNK, CONTINUING
     Route: 058
     Dates: start: 20151130
  3. REMODULIN [Suspect]
     Active Substance: TREPROSTINIL
     Dosage: UNK, CONTINUING (AT INFUSION RATE OF 0.042 ML/HR)
     Route: 058
  4. REMODULIN [Suspect]
     Active Substance: TREPROSTINIL
     Dosage: 0.140 ?G/KG, CONTINUING
     Route: 058

REACTIONS (13)
  - Infusion site scar [Unknown]
  - Infusion site infection [Unknown]
  - Vomiting [Unknown]
  - Infusion site abscess [Unknown]
  - Drug hypersensitivity [Not Recovered/Not Resolved]
  - Infusion site discolouration [Unknown]
  - Headache [Unknown]
  - Eczema [Unknown]
  - Infusion site discharge [Unknown]
  - Panniculitis [Unknown]
  - Product dose omission issue [Unknown]
  - Infusion site hypersensitivity [Unknown]
  - Infusion site dermatitis [Not Recovered/Not Resolved]

NARRATIVE: CASE EVENT DATE: 2017
